FAERS Safety Report 11569377 (Version 1)
Quarter: 2015Q3

REPORT INFORMATION
  Report Type: Spontaneous
  Country: BR (occurrence: BR)
  Receive Date: 20150929
  Receipt Date: 20150929
  Transmission Date: 20151125
  Serious: Yes (Other)
  Sender: FDA-Public Use
  Company Number: BR-SA-2015SA146114

PATIENT
  Age: 44 Year
  Sex: Female

DRUGS (1)
  1. CEREZYME [Suspect]
     Active Substance: IMIGLUCERASE
     Indication: GAUCHER^S DISEASE
     Dosage: 7 VIALS UNSPECIFIED FREQUENCY
     Route: 041
     Dates: start: 19990701, end: 2015

REACTIONS (5)
  - Fall [Recovered/Resolved]
  - Depression [Unknown]
  - Loss of consciousness [Recovered/Resolved]
  - Decreased appetite [Unknown]
  - Head injury [Recovered/Resolved]

NARRATIVE: CASE EVENT DATE: 20150920
